FAERS Safety Report 20884061 (Version 2)
Quarter: 2022Q3

REPORT INFORMATION
  Report Type: Spontaneous
  Country: BR (occurrence: BR)
  Receive Date: 20220527
  Receipt Date: 20220718
  Transmission Date: 20221027
  Serious: Yes (Death, Other)
  Sender: FDA-Public Use
  Company Number: BR-ALXN-A202206196

PATIENT
  Age: 60 Year
  Sex: Male

DRUGS (1)
  1. SOLIRIS [Suspect]
     Active Substance: ECULIZUMAB
     Indication: Paroxysmal nocturnal haemoglobinuria
     Dosage: UNK
     Route: 065

REACTIONS (5)
  - Shock [Fatal]
  - Pneumonia viral [Fatal]
  - Acute kidney injury [Fatal]
  - Leukaemia [Fatal]
  - Coronavirus infection [Fatal]
